FAERS Safety Report 9866796 (Version 1)
Quarter: 2014Q1

REPORT INFORMATION
  Report Type: Spontaneous
  Country: IT (occurrence: IT)
  Receive Date: 20140204
  Receipt Date: 20140204
  Transmission Date: 20141002
  Serious: Yes (Other)
  Sender: FDA-Public Use
  Company Number: IT-ACCORD-021682

PATIENT
  Age: 63 Year
  Sex: Female
  Weight: 55 kg

DRUGS (4)
  1. IRINOTECAN [Suspect]
     Indication: COLON CANCER
     Dosage: 20 MG/ML, 1 GLASS AMPOULE 5 ML
     Route: 042
     Dates: start: 20130527, end: 20131119
  2. FLUOROURACIL [Concomitant]
     Indication: COLON CANCER
     Dosage: 5 G/100 ML
     Route: 042
     Dates: start: 20130527, end: 20131205
  3. ERBITUX [Concomitant]
     Indication: COLON CANCER
     Dosage: 5 MG/ML
     Route: 042
     Dates: start: 20130527, end: 20131210
  4. FLUOROURACIL [Concomitant]
     Indication: COLON CANCER
     Route: 042
     Dates: start: 20130527, end: 20131205

REACTIONS (1)
  - Enteritis [Recovered/Resolved]
